FAERS Safety Report 8896702 (Version 1)
Quarter: 2012Q4

REPORT INFORMATION
  Report Type: Spontaneous
  Country: US (occurrence: None)
  Receive Date: 20121102
  Receipt Date: 20121102
  Transmission Date: 20130627
  Serious: Yes (Hospitalization, Other)
  Sender: FDA-Public Use
  Company Number: NES-AE-12-014

PATIENT
  Age: 54 Year
  Sex: Male

DRUGS (1)
  1. MORPHINE SULFATE [Suspect]

REACTIONS (13)
  - Confusional state [None]
  - Lethargy [None]
  - Muscle rigidity [None]
  - Extensor plantar response [None]
  - Accidental overdose [None]
  - Unresponsive to stimuli [None]
  - Stupor [None]
  - PCO2 increased [None]
  - Pupillary reflex impaired [None]
  - Brain hypoxia [None]
  - Locked-in syndrome [None]
  - Toxicity to various agents [None]
  - Leukoencephalopathy [None]
